FAERS Safety Report 9958970 (Version 1)
Quarter: 2014Q1

REPORT INFORMATION
  Report Type: Report from Study
  Country: US (occurrence: US)
  Receive Date: 20140305
  Receipt Date: 20140305
  Transmission Date: 20141002
  Serious: No
  Sender: FDA-Public Use
  Company Number: US-ABBVIE-13P-163-1102207-00

PATIENT
  Age: 53 Year
  Sex: Male

DRUGS (9)
  1. HUMIRA [Suspect]
     Indication: COLITIS ULCERATIVE
     Dates: start: 20130321, end: 20130321
  2. HUMIRA [Suspect]
     Dates: start: 20130404, end: 20130404
  3. HUMIRA [Suspect]
  4. HUMIRA [Suspect]
  5. GLIPIZIDE [Concomitant]
     Indication: DIABETES MELLITUS
  6. METFORMIN [Concomitant]
     Indication: DIABETES MELLITUS
     Dosage: 4 A DAY
  7. LEVOTHYROXINE [Concomitant]
     Indication: HYPOTHYROIDISM
  8. ATORVASTATIN [Concomitant]
     Indication: HYPERCHOLESTEROLAEMIA
  9. LIALDA [Concomitant]
     Indication: HYPERCHOLESTEROLAEMIA
     Dosage: 4 A DAY

REACTIONS (1)
  - Drug ineffective [Not Recovered/Not Resolved]
